FAERS Safety Report 25504561 (Version 2)
Quarter: 2025Q3

REPORT INFORMATION
  Report Type: Report from Study
  Country: JP (occurrence: JP)
  Receive Date: 20250702
  Receipt Date: 20250902
  Transmission Date: 20251020
  Serious: Yes (Death, Life-Threatening, Hospitalization, Other)
  Sender: NOVARTIS
  Company Number: JP-002147023-NVSJ2022JP001010

PATIENT
  Age: 19 Year
  Sex: Male
  Weight: 44 kg

DRUGS (3)
  1. KYMRIAH [Suspect]
     Active Substance: TISAGENLECLEUCEL
     Indication: Acute lymphocytic leukaemia recurrent
     Route: 041
     Dates: start: 20210519, end: 20210519
  2. CYCLOPHOSPHAMIDE [Concomitant]
     Active Substance: CYCLOPHOSPHAMIDE
     Indication: Lymphodepletion
     Route: 065
     Dates: start: 20210512
  3. FLUDARABINE [Concomitant]
     Active Substance: FLUDARABINE PHOSPHATE
     Indication: Lymphodepletion
     Route: 065
     Dates: start: 20210512

REACTIONS (19)
  - Acute lymphocytic leukaemia recurrent [Fatal]
  - Malignant neoplasm progression [Fatal]
  - Liver disorder [Unknown]
  - Respiratory failure [Unknown]
  - Metabolic disorder [Unknown]
  - Neutrophil count decreased [Unknown]
  - Platelet count decreased [Unknown]
  - Cytokine release syndrome [Recovered/Resolved]
  - Pyrexia [Recovered/Resolved]
  - Hypotension [Recovered/Resolved]
  - Neurotoxicity [Recovered/Resolved]
  - Depressed level of consciousness [Recovered/Resolved]
  - Alanine aminotransferase increased [Recovered/Resolved]
  - Lymphocyte count decreased [Recovered/Resolved]
  - Hypogammaglobulinaemia [Recovered/Resolved]
  - Febrile neutropenia [Unknown]
  - White blood cell count decreased [Unknown]
  - Haemoglobin decreased [Unknown]
  - Hypogammaglobulinaemia [Unknown]

NARRATIVE: CASE EVENT DATE: 20210521
